FAERS Safety Report 7391888-3 (Version None)
Quarter: 2011Q2

REPORT INFORMATION
  Report Type: 
  Country: None (occurrence: None)
  Receive Date: 20110404
  Receipt Date: 20110328
  Transmission Date: 20111010
  Serious: Yes (Hospitalization)
  Sender: FDA-Public Use
  Company Number: BR-MEDIMMUNE-MEDI-0012231

PATIENT
  Sex: Male
  Weight: 8.8 kg

DRUGS (2)
  1. SYNAGIS [Suspect]
     Indication: CARDIAC DISORDER
     Route: 030
     Dates: start: 20100528, end: 20100801
  2. SYNAGIS [Suspect]
     Indication: PULMONARY ARTERY ATRESIA

REACTIONS (2)
  - SEPSIS [None]
  - PNEUMONIA [None]
